FAERS Safety Report 12903364 (Version 2)
Quarter: 2016Q4

REPORT INFORMATION
  Report Type: Report from Study
  Country: US (occurrence: US)
  Receive Date: 20161102
  Receipt Date: 20161122
  Transmission Date: 20170207
  Serious: Yes (Other)
  Sender: FDA-Public Use
  Company Number: US-MALLINCKRODT-T201605332

PATIENT
  Age: 61 Year
  Sex: Male

DRUGS (1)
  1. REPOSITORY CORTICOTROPIN INJECTION [Suspect]
     Active Substance: CORTICOTROPIN
     Indication: SARCOIDOSIS
     Dosage: 80U/ML, TWICE WEEKLY (MON + THUR)
     Route: 058
     Dates: start: 20151120

REACTIONS (4)
  - Pulmonary mass [Not Recovered/Not Resolved]
  - Haemoptysis [Not Recovered/Not Resolved]
  - Thrombosis [Not Recovered/Not Resolved]
  - Oropharyngeal pain [Not Recovered/Not Resolved]

NARRATIVE: CASE EVENT DATE: 20161018
